FAERS Safety Report 19162706 (Version 3)
Quarter: 2021Q2

REPORT INFORMATION
  Report Type: Report from Study
  Country: None (occurrence: AR)
  Receive Date: 20210420
  Receipt Date: 20210520
  Transmission Date: 20210717
  Serious: Yes (Hospitalization, Other)
  Sender: FDA-Public Use
  Company Number: AR-ABBVIE-21K-007-3821216-00

PATIENT
  Sex: Female

DRUGS (1)
  1. HUMIRA [Suspect]
     Active Substance: ADALIMUMAB
     Indication: CROHN^S DISEASE
     Route: 065
     Dates: start: 20190325

REACTIONS (8)
  - Gastrointestinal disorder [Unknown]
  - Dysuria [Unknown]
  - Bladder pain [Not Recovered/Not Resolved]
  - Gastrointestinal haemorrhage [Unknown]
  - Obstruction gastric [Unknown]
  - Suspected COVID-19 [Recovering/Resolving]
  - Cystitis bacterial [Unknown]
  - Urinary retention [Unknown]
